FAERS Safety Report 13674766 (Version 2)
Quarter: 2017Q3

REPORT INFORMATION
  Report Type: Spontaneous
  Country: US (occurrence: US)
  Receive Date: 20170621
  Receipt Date: 20170713
  Transmission Date: 20171127
  Serious: Yes (Other)
  Sender: FDA-Public Use
  Company Number: US-PFIZER INC-2017266221

PATIENT
  Age: 53 Year
  Sex: Female

DRUGS (5)
  1. DIPHENHYDRAMINE. [Concomitant]
     Active Substance: DIPHENHYDRAMINE
     Indication: PREMEDICATION
     Dosage: 25 MG, SINGLE
     Route: 042
     Dates: start: 20170220, end: 20170220
  2. PALONOSETRON [Concomitant]
     Active Substance: PALONOSETRON
     Indication: PREMEDICATION
     Dosage: 0.25 MG, SINGLE
     Route: 042
     Dates: start: 20170220, end: 20170220
  3. DEXAMETHASONE. [Concomitant]
     Active Substance: DEXAMETHASONE
     Indication: PREMEDICATION
     Dosage: 20 MG, SINGLE
     Route: 042
     Dates: start: 20170220, end: 20170220
  4. PACLITAXEL. [Suspect]
     Active Substance: PACLITAXEL
     Indication: ENDOMETRIAL CANCER
     Dosage: 375 MG, IN 500ML OF NORMAL SALINE RATE OF 480ML/HOUR
     Route: 042
     Dates: start: 20170220
  5. FAMOTIDINE. [Concomitant]
     Active Substance: FAMOTIDINE
     Indication: PREMEDICATION
     Dosage: 20 MG, SINGLE
     Route: 042
     Dates: start: 20170220, end: 20170220

REACTIONS (6)
  - Hypoxia [Recovered/Resolved]
  - Paraesthesia oral [Recovered/Resolved]
  - Flushing [Recovered/Resolved]
  - Paraesthesia [Recovered/Resolved]
  - Tachycardia [Recovered/Resolved]
  - Hypotension [Recovered/Resolved]

NARRATIVE: CASE EVENT DATE: 20170220
